FAERS Safety Report 14979360 (Version 3)
Quarter: 2018Q3

REPORT INFORMATION
  Report Type: Report from Study
  Country: US (occurrence: US)
  Receive Date: 20180606
  Receipt Date: 20180802
  Transmission Date: 20181010
  Serious: Yes (Hospitalization, Other)
  Sender: FDA-Public Use
  Company Number: US-GILEAD-2018-0342285

PATIENT
  Age: 40 Year
  Sex: Female

DRUGS (5)
  1. AMBRISENTAN [Suspect]
     Active Substance: AMBRISENTAN
     Indication: PULMONARY HYPERTENSION
     Dosage: 10 MG, QD
     Route: 065
     Dates: start: 20180613
  2. UPTRAVI [Suspect]
     Active Substance: SELEXIPAG
     Indication: PULMONARY HYPERTENSION
     Dosage: 1400 UG, BID
     Route: 065
  3. ADCIRCA [Suspect]
     Active Substance: TADALAFIL
     Dosage: 40 MG, QD
     Route: 065
  4. ADCIRCA [Suspect]
     Active Substance: TADALAFIL
     Indication: PULMONARY HYPERTENSION
     Dosage: 20 MG, BID
     Route: 065
  5. MELOXICAM. [Concomitant]
     Active Substance: MELOXICAM

REACTIONS (6)
  - Chills [Unknown]
  - Dizziness [Unknown]
  - Pyrexia [Unknown]
  - Gastritis [Recovering/Resolving]
  - Haemoglobin decreased [Unknown]
  - Pulmonary arterial hypertension [Unknown]

NARRATIVE: CASE EVENT DATE: 20180621
